FAERS Safety Report 8817344 (Version 1)
Quarter: 2012Q4

REPORT INFORMATION
  Report Type: 
  Country: GB (occurrence: GB)
  Receive Date: 20121004
  Receipt Date: 20121004
  Transmission Date: 20130627
  Serious: Yes (Other)
  Sender: FDA-Public Use
  Company Number: PHHY2012GB084763

PATIENT
  Age: 40 Year
  Sex: Female
  Weight: 100.69 kg

DRUGS (6)
  1. AMOXICILLIN\CLAVULANATE POTASSIUM [Suspect]
     Indication: WOUND INFECTION
     Dosage: 1 tablet 4 times a day
     Route: 048
     Dates: start: 20120815
  2. AMITRIPTYLINE [Concomitant]
  3. METFORMIN [Concomitant]
  4. OMEPRAZOLE [Concomitant]
  5. DULOXETINE [Concomitant]
  6. BETAHISTINE [Concomitant]

REACTIONS (5)
  - Vaginal ulceration [Unknown]
  - Oesophageal ulcer [Unknown]
  - Mouth ulceration [Unknown]
  - Rash generalised [Unknown]
  - Erythema [Unknown]
